FAERS Safety Report 6146950-X (Version None)
Quarter: 2009Q2

REPORT INFORMATION
  Report Type: 
  Country: None (occurrence: None)
  Receive Date: 20090407
  Receipt Date: 20090326
  Transmission Date: 20091009
  Serious: Yes (Hospitalization, Other)
  Sender: FDA-Public Use
  Company Number: CH-ELI_LILLY_AND_COMPANY-CH200903006643

PATIENT
  Age: 71 Year
  Sex: Female

DRUGS (15)
  1. ZYPREXA [Suspect]
     Indication: BIPOLAR DISORDER
     Dosage: 10 MG, DAILY (1/D)
     Route: 048
     Dates: end: 20080904
  2. ZYPREXA [Interacting]
     Route: 048
     Dates: start: 20080905, end: 20080905
  3. ZYPREXA [Interacting]
     Dosage: 10 MG, DAILY (1/D)
     Route: 048
     Dates: start: 20080901
  4. REMERON [Interacting]
     Indication: DEPRESSION
     Dosage: 40 D/F, UNK
     Route: 048
     Dates: start: 20080905, end: 20080905
  5. ZOLPIDEM [Interacting]
     Indication: SLEEP DISORDER
     Dosage: 10 MG, DAILY (1/D)
     Route: 048
     Dates: end: 20080904
  6. ZOLPIDEM [Interacting]
     Dosage: 300 MG, UNK
     Route: 048
     Dates: start: 20080905, end: 20080905
  7. ZOLPIDEM [Interacting]
     Dosage: 10 MG, DAILY (1/D)
     Route: 048
     Dates: start: 20080901
  8. LIVIAL [Concomitant]
     Dosage: 2.5 MG, UNK
     Route: 048
  9. TOLVON [Concomitant]
     Dosage: 45 MG, DAILY (1/D)
     Route: 048
  10. NEXIUM [Concomitant]
     Dosage: 40 MG, DAILY (1/D)
     Route: 048
  11. ACIDUM FOLICUM HAENSELER [Concomitant]
     Dosage: 10 MG, WEEKLY (1/W)
     Route: 048
  12. DURAGESIC-100 [Concomitant]
     Dosage: EVERY 72 HRS
     Route: 062
  13. METHOTREXATE SODIUM [Concomitant]
     Dosage: 15 MG, WEEKLY (1/W)
     Route: 042
  14. VITARUBIN [Concomitant]
     Dosage: 1 G, WEEKLY (1/W)
     Route: 051
  15. CALCIMAGON-D 3 [Concomitant]
     Dosage: UNK, DAILY (1/D)
     Route: 048

REACTIONS (10)
  - BLOOD CREATINE PHOSPHOKINASE INCREASED [None]
  - DRUG INTERACTION [None]
  - ELECTROCARDIOGRAM QT PROLONGED [None]
  - FALL [None]
  - INJURY [None]
  - INTENTIONAL OVERDOSE [None]
  - LOSS OF CONSCIOUSNESS [None]
  - RENAL FAILURE [None]
  - SUICIDE ATTEMPT [None]
  - SYSTEMIC INFLAMMATORY RESPONSE SYNDROME [None]
